FAERS Safety Report 24194271 (Version 2)
Quarter: 2024Q3

REPORT INFORMATION
  Report Type: Spontaneous
  Country: RU (occurrence: RU)
  Receive Date: 20240809
  Receipt Date: 20240820
  Transmission Date: 20241017
  Serious: Yes (Death, Hospitalization)
  Sender: TEVA
  Company Number: RU-TEVA-VS-3229164

PATIENT
  Age: 47 Year
  Sex: Male

DRUGS (24)
  1. METHOTREXATE [Suspect]
     Active Substance: METHOTREXATE
     Indication: Psoriatic arthropathy
     Route: 030
  2. METHOTREXATE [Suspect]
     Active Substance: METHOTREXATE
     Indication: Psoriatic arthropathy
     Dosage: FOR 1.5YEARS
     Route: 030
  3. PREDNISOLONE [Suspect]
     Active Substance: PREDNISOLONE
     Indication: Acquired epidermolysis bullosa
     Route: 065
  4. PREDNISOLONE [Suspect]
     Active Substance: PREDNISOLONE
     Indication: Acquired epidermolysis bullosa
     Dosage: 12 TABLETS PER DAY
     Route: 065
  5. DIPROSPAN [Suspect]
     Active Substance: BETAMETHASONE DIPROPIONATE\BETAMETHASONE SODIUM PHOSPHATE
     Indication: Acquired epidermolysis bullosa
     Route: 030
  6. NEOTIGASON [Suspect]
     Active Substance: ACITRETIN
     Indication: Erythrodermic psoriasis
     Dosage: FOLLOWED BY A WEEK
     Route: 065
  7. Pimafucort [Concomitant]
     Indication: Cutaneous T-cell lymphoma
     Route: 065
  8. FOLIC ACID [Concomitant]
     Active Substance: FOLIC ACID
     Indication: Product used for unknown indication
     Dosage: 1 TABLET 3 TIMES/DAY
     Route: 065
  9. ENOXAPARIN SODIUM [Concomitant]
     Active Substance: ENOXAPARIN SODIUM
     Indication: Product used for unknown indication
     Dosage: IN THE EVENING
     Route: 058
     Dates: start: 20210807, end: 20210808
  10. DEXAMETHASONE [Suspect]
     Active Substance: DEXAMETHASONE
     Indication: Adrenocortical steroid therapy
     Dosage: DRIP; 12 MG, NO. 4; 8 MG, NO. 2; 4 MG, NO. 5; 2 MG, NO. 6
     Route: 042
  11. DEXAMETHASONE [Suspect]
     Active Substance: DEXAMETHASONE
     Indication: Adrenocortical steroid therapy
     Dosage: DRIP; 12 MG, NO. 4; 8 MG, NO. 2; 4 MG, NO. 5; 2 MG, NO. 6
     Route: 042
  12. DEXAMETHASONE [Suspect]
     Active Substance: DEXAMETHASONE
     Indication: Adrenocortical steroid therapy
     Dosage: DRIP; 12 MG, NO. 4; 8 MG, NO. 2; 4 MG, NO. 5; 2 MG, NO. 6
     Route: 042
  13. DEXAMETHASONE [Suspect]
     Active Substance: DEXAMETHASONE
     Indication: Adrenocortical steroid therapy
     Dosage: DRIP; 12 MG, NO. 4; 8 MG, NO. 2; 4 MG, NO. 5; 2 MG, NO. 6
     Route: 042
  14. ALBUMIN HUMAN [Concomitant]
     Active Substance: ALBUMIN HUMAN
     Indication: Product used for unknown indication
     Dosage: DRIP
     Route: 042
     Dates: start: 20210808, end: 20210809
  15. APIXABAN [Concomitant]
     Active Substance: APIXABAN
     Indication: Product used for unknown indication
     Route: 065
     Dates: start: 20210806, end: 20210807
  16. AZITHROMYCIN [Suspect]
     Active Substance: AZITHROMYCIN
     Indication: Antibiotic therapy
     Dosage: 1 TABLET ONCE A DAY
     Route: 065
  17. KETOPROFEN [Concomitant]
     Active Substance: KETOPROFEN
     Indication: Product used for unknown indication
     Route: 030
     Dates: start: 20210807, end: 20210807
  18. LINEZOLID [Suspect]
     Active Substance: LINEZOLID
     Indication: Antibiotic therapy
     Route: 065
     Dates: start: 20210807, end: 20210809
  19. MEROPENEM [Suspect]
     Active Substance: MEROPENEM
     Indication: Antibiotic therapy
     Route: 065
     Dates: start: 20210807, end: 20210809
  20. AMITRIPTYLINE [Concomitant]
     Active Substance: AMITRIPTYLINE
     Indication: Product used for unknown indication
     Dosage: 1 TABLET AT NIGHT
     Route: 065
  21. AMOXICILLIN\CLAVULANIC ACID [Suspect]
     Active Substance: AMOXICILLIN\CLAVULANIC ACID
     Indication: Antibiotic therapy
     Dosage: 1TABLET 3TIMES A DAY
     Route: 065
  22. SODIUM CHLORIDE [Concomitant]
     Active Substance: SODIUM CHLORIDE
     Indication: Product used for unknown indication
     Dosage: DRIP
     Route: 042
     Dates: start: 20210807, end: 20210809
  23. ACETAMINOPHEN [Concomitant]
     Active Substance: ACETAMINOPHEN
     Indication: Pyrexia
     Dosage: ONCE
     Route: 065
     Dates: start: 20210807, end: 20210807
  24. FLUCONAZOLE [Concomitant]
     Active Substance: FLUCONAZOLE
     Indication: Product used for unknown indication
     Route: 065

REACTIONS (23)
  - Staphylococcal scalded skin syndrome [Fatal]
  - Respiratory failure [Fatal]
  - Emphysema [Fatal]
  - Hepatic failure [Fatal]
  - Multiple organ dysfunction syndrome [Fatal]
  - Cytomegalovirus infection [Fatal]
  - Cardiac failure [Fatal]
  - Nasal septum perforation [Unknown]
  - Pulmonary embolism [Fatal]
  - Protein deficiency [Fatal]
  - Hydrothorax [Fatal]
  - Gastritis erosive [Fatal]
  - Pneumonia [Fatal]
  - Drug intolerance [Unknown]
  - Pulmonary oedema [Fatal]
  - Bacteraemia [Fatal]
  - Pneumothorax spontaneous [Fatal]
  - Systemic candida [Fatal]
  - Systemic candida [Fatal]
  - Renal failure [Fatal]
  - Drug ineffective [Fatal]
  - Brain oedema [Fatal]
  - Anaemia [Unknown]
